FAERS Safety Report 6525748-4 (Version None)
Quarter: 2009Q4

REPORT INFORMATION
  Report Type: 
  Country: None (occurrence: None)
  Receive Date: 20091228
  Receipt Date: 20091218
  Transmission Date: 20100525
  Serious: Yes (Hospitalization)
  Sender: FDA-Public Use
  Company Number: 2009US004214

PATIENT
  Age: 54 Year
  Sex: Male

DRUGS (7)
  1. AMBISOME [Suspect]
     Indication: MUCORMYCOSIS
     Dosage: 100 MG, UID/QD, IV NOS
     Route: 042
     Dates: start: 20091113, end: 20091125
  2. CYCLOPHOSPHAMIDE [Suspect]
     Indication: WEGENER'S GRANULOMATOSIS
     Dosage: 50 MG, UID/QD, ORAL
     Route: 048
     Dates: start: 20090730
  3. OMEPRAZOLE [Concomitant]
  4. PREDNISOLONE [Concomitant]
  5. FOSAMAC (ALENDRONATE SODIUM) [Concomitant]
  6. VFEND [Concomitant]
  7. CRESTOR [Concomitant]

REACTIONS (5)
  - ALANINE AMINOTRANSFERASE INCREASED [None]
  - ASPARTATE AMINOTRANSFERASE INCREASED [None]
  - DISEASE PROGRESSION [None]
  - HEPATIC FUNCTION ABNORMAL [None]
  - WEGENER'S GRANULOMATOSIS [None]
